FAERS Safety Report 9966012 (Version 1)
Quarter: 2014Q1

REPORT INFORMATION
  Report Type: Report from Study
  Country: US (occurrence: US)
  Receive Date: 20140305
  Receipt Date: 20140305
  Transmission Date: 20141002
  Serious: No
  Sender: FDA-Public Use
  Company Number: US-ABBVIE-13P-163-1127678-00

PATIENT
  Age: 74 Year
  Sex: Female

DRUGS (16)
  1. HUMIRA [Suspect]
     Indication: COLITIS ULCERATIVE
     Dates: start: 201305
  2. OXYBUTYNIN [Concomitant]
     Indication: PRODUCT USED FOR UNKNOWN INDICATION
  3. ATENOLOL [Concomitant]
     Indication: HYPERTENSION
     Dosage: 50 MG DAILY
  4. METFORMIN [Concomitant]
     Indication: DIABETES MELLITUS
  5. GLIMEPIRIDE [Concomitant]
     Indication: DIABETES MELLITUS
     Dosage: 4 MG DAILY
  6. CRESTOR [Concomitant]
     Indication: DYSLIPIDAEMIA
     Dosage: 20 MG DAILY
  7. LASIX [Concomitant]
     Indication: SWELLING
  8. TRAMADOL [Concomitant]
     Indication: BACK PAIN
  9. TRAZODONE [Concomitant]
     Indication: INSOMNIA
  10. PROTONIX [Concomitant]
     Indication: GASTROOESOPHAGEAL REFLUX DISEASE
     Dosage: 40 MG DAILY
  11. B-12 [Concomitant]
     Indication: ANAEMIA
     Route: 050
  12. NOVOLOG [Concomitant]
     Indication: DIABETES MELLITUS
     Dosage: SSI
  13. AZATHIOPRINE [Concomitant]
     Indication: COLITIS ULCERATIVE
     Dosage: ONCE IN THE MORNING
  14. VICTOZA [Concomitant]
     Indication: PRODUCT USED FOR UNKNOWN INDICATION
  15. SULFATRIM DS [Concomitant]
     Indication: PRODUCT USED FOR UNKNOWN INDICATION
     Dosage: X 1 WEEK
  16. XARELTO [Concomitant]
     Indication: PRODUCT USED FOR UNKNOWN INDICATION

REACTIONS (1)
  - Thrombosis [Unknown]
